FAERS Safety Report 23217600 (Version 3)
Quarter: 2024Q2

REPORT INFORMATION
  Report Type: Spontaneous
  Country: US (occurrence: US)
  Receive Date: 20231122
  Receipt Date: 20240522
  Transmission Date: 20240715
  Serious: Yes (Other)
  Sender: FDA-Public Use
  Company Number: US-INCYTE CORPORATION-2023IN011966

PATIENT

DRUGS (25)
  1. JAKAFI [Interacting]
     Active Substance: RUXOLITINIB
     Indication: Graft versus host disease
     Dosage: 5 MILLIGRAM, BID
     Route: 048
     Dates: start: 20231020, end: 20240110
  2. JAKAFI [Interacting]
     Active Substance: RUXOLITINIB
     Dosage: 10MG IN AM, 5 MG IN PM, BID
     Route: 048
     Dates: start: 20240111, end: 20240117
  3. VORICONAZOLE [Interacting]
     Active Substance: VORICONAZOLE
     Dosage: 40 MILLIGRAM PER MILLILITRE (75 ML)
     Route: 065
     Dates: end: 20240115
  4. VORICONAZOLE [Interacting]
     Active Substance: VORICONAZOLE
     Dosage: 200 MILLIGRAM, BID
     Route: 048
     Dates: start: 20240117
  5. LORAZEPAM [Concomitant]
     Active Substance: LORAZEPAM
     Indication: Product used for unknown indication
     Route: 065
  6. ACYCLOVIR [Concomitant]
     Active Substance: ACYCLOVIR
     Indication: Product used for unknown indication
     Dosage: 200 MILLIGRAM
     Route: 065
  7. ALLOPURINOL [Concomitant]
     Active Substance: ALLOPURINOL
     Indication: Product used for unknown indication
     Dosage: 100 MILLIGRAM
     Route: 065
  8. CYMBALTA [Concomitant]
     Active Substance: DULOXETINE HYDROCHLORIDE
     Indication: Product used for unknown indication
     Dosage: 20 MILLIGRAM
     Route: 065
     Dates: end: 20240115
  9. LANSOPRAZOLE [Concomitant]
     Active Substance: LANSOPRAZOLE
     Indication: Product used for unknown indication
     Dosage: 15 MILLIGRAM
     Route: 065
  10. ONDANSETRON [Concomitant]
     Active Substance: ONDANSETRON
     Indication: Product used for unknown indication
     Dosage: 4 MILLIGRAM
     Route: 065
  11. PREGABALIN [Concomitant]
     Active Substance: PREGABALIN
     Indication: Product used for unknown indication
     Dosage: 100 MILLIGRAM
     Route: 065
  12. SUCRALFATE [Concomitant]
     Active Substance: SUCRALFATE
     Indication: Product used for unknown indication
     Dosage: 1 GRAM
     Route: 065
  13. TACROLIMUS [Concomitant]
     Active Substance: TACROLIMUS
     Indication: Product used for unknown indication
     Dosage: 1 MILLIGRAM
     Route: 065
  14. TACROLIMUS [Concomitant]
     Active Substance: TACROLIMUS
     Dosage: UNK UNK, BID
     Route: 065
     Dates: start: 20231020
  15. TACROLIMUS [Concomitant]
     Active Substance: TACROLIMUS
     Dosage: 0.08ML = 0.5MG/ML X 0.08 ML = 0.04MG PGT, BID
     Route: 065
     Dates: start: 20231129
  16. TACROLIMUS [Concomitant]
     Active Substance: TACROLIMUS
     Dosage: 0.1ML = 0.5MG/ML X 0.1 ML = 0.05MG PGT, BID
     Route: 065
     Dates: start: 20231228
  17. TACROLIMUS [Concomitant]
     Active Substance: TACROLIMUS
     Dosage: 0.15ML = 0.5MG/ML X 0.12 ML = 0.075MG PGT, BID
     Route: 065
     Dates: start: 20240111, end: 20240115
  18. TACROLIMUS [Concomitant]
     Active Substance: TACROLIMUS
     Dosage: 0.15ML = 0.5MG/ML X 0.12 ML = 0.075MG PGT, BID
     Route: 065
     Dates: start: 20240117
  19. TACROLIMUS [Concomitant]
     Active Substance: TACROLIMUS
     Dosage: 0.2ML OF 0.5MG/ML = 0.1MG, BID
     Route: 048
     Dates: start: 20240125
  20. PREDNISONE [Concomitant]
     Active Substance: PREDNISONE
     Indication: Product used for unknown indication
     Dosage: UNK
     Route: 048
  21. PREDNISONE [Concomitant]
     Active Substance: PREDNISONE
     Dosage: 20 MILLIGRAM, QD (X 4 DAYS)
     Route: 048
     Dates: start: 20240111
  22. PREDNISONE [Concomitant]
     Active Substance: PREDNISONE
     Dosage: 10 MILLIGRAM, QD
     Route: 048
     Dates: start: 20240117
  23. PREDNISONE [Concomitant]
     Active Substance: PREDNISONE
     Dosage: 5 MILLIGRAM, QD
     Route: 048
     Dates: start: 20240119
  24. PREDNISONE [Concomitant]
     Active Substance: PREDNISONE
     Dosage: 2.5 MILLIGRAM, QD
     Route: 048
     Dates: start: 20240125
  25. PREDNISONE [Concomitant]
     Active Substance: PREDNISONE
     Dosage: 2.5 MILLIGRAM, QOD
     Route: 048
     Dates: start: 20240215, end: 20240229

REACTIONS (10)
  - Serum ferritin increased [Recovering/Resolving]
  - Aspartate aminotransferase increased [Recovering/Resolving]
  - Alanine aminotransferase increased [Recovering/Resolving]
  - Drug interaction [Unknown]
  - Red blood cell sedimentation rate increased [Unknown]
  - Hypophagia [Unknown]
  - Weight decreased [Unknown]
  - Blood bilirubin increased [Recovering/Resolving]
  - Gamma-glutamyltransferase increased [Recovering/Resolving]
  - Vomiting [Unknown]

NARRATIVE: CASE EVENT DATE: 20231020
